FAERS Safety Report 7651853-5 (Version None)
Quarter: 2011Q3

REPORT INFORMATION
  Report Type: 
  Country: None (occurrence: None)
  Receive Date: 20110803
  Receipt Date: 20110722
  Transmission Date: 20111222
  Serious: Yes (Other)
  Sender: FDA-Public Use
  Company Number: US-BIOGENIDEC-2010BI044992

PATIENT
  Age: 31 Year
  Sex: Female

DRUGS (6)
  1. AMANTADINE HCL [Concomitant]
     Indication: FATIGUE
  2. XANAX [Concomitant]
  3. LEVOTHYROXINE SODIUM [Concomitant]
  4. TESTOSTERONE [Concomitant]
  5. AVONEX [Suspect]
     Indication: MULTIPLE SCLEROSIS
     Route: 030
     Dates: start: 20100317, end: 20101123
  6. PROGESTERONE [Concomitant]

REACTIONS (1)
  - HIGH RISK PREGNANCY [None]
